FAERS Safety Report 5314696-3 (Version None)
Quarter: 2007Q2

REPORT INFORMATION
  Report Type: 
  Country: None (occurrence: None)
  Receive Date: 20070427
  Receipt Date: 20070423
  Transmission Date: 20071010
  Serious: Yes (Hospitalization)
  Sender: FDA-Public Use
  Company Number: 2007-157066-NL

PATIENT
  Age: 41 Year
  Sex: Female

DRUGS (9)
  1. CHORIONIC GONADOTROPIN [Suspect]
     Indication: IN VITRO FERTILISATION
     Dosage: 10000 IU ONCE INTRAMUSCULAR
     Route: 030
     Dates: start: 20070329, end: 20070329
  2. MENOTROPINS [Suspect]
     Indication: OVULATION INDUCTION
     Dosage: 150 IU INTRAMUSCULAR
     Route: 030
     Dates: start: 20070321, end: 20070321
  3. MENOTROPINS [Suspect]
     Indication: OVULATION INDUCTION
     Dosage: 150 IU INTRAMUSCULAR
     Route: 030
     Dates: start: 20070323, end: 20070323
  4. MENOTROPINS [Suspect]
     Indication: OVULATION INDUCTION
     Dosage: 150 IU INTRAMUSCULAR
     Route: 030
     Dates: start: 20070325, end: 20070328
  5. CETRORELIX ACETATE [Suspect]
     Indication: OVULATION INDUCTION
     Dosage: 0.25 MG SUBCUTANEOUS
     Route: 058
     Dates: start: 20070328, end: 20070328
  6. CLOMIPHENE CITRATE [Suspect]
     Indication: OVULATION INDUCTION
     Dosage: 100 MG ORAL
     Route: 048
     Dates: start: 20070321, end: 20070328
  7. PROPOFOL [Suspect]
     Indication: ANAESTHESIA
     Dosage: 150 MG INTRAVENOUS (NOS)
     Route: 042
     Dates: start: 20070331, end: 20070331
  8. PREDNISOLONE [Concomitant]
  9. BUFFERIN [Concomitant]

REACTIONS (3)
  - HAEMOPTYSIS [None]
  - OXYGEN SATURATION DECREASED [None]
  - PULMONARY HAEMORRHAGE [None]
